FAERS Safety Report 4898663-X (Version None)
Quarter: 2006Q1

REPORT INFORMATION
  Report Type: 
  Country: None (occurrence: None)
  Receive Date: 20060202
  Receipt Date: 20060123
  Transmission Date: 20060701
  Serious: Yes (Hospitalization)
  Sender: FDA-Public Use
  Company Number: ES-AVENTIS-200610434EU

PATIENT
  Age: 67 Year
  Sex: Male

DRUGS (6)
  1. SEGURIL [Suspect]
     Indication: OEDEMA
     Route: 048
     Dates: start: 20051127, end: 20051217
  2. ALDACTONE [Suspect]
     Indication: OEDEMA
     Route: 048
     Dates: start: 20030101
  3. ATENOLOL [Concomitant]
     Route: 048
     Dates: start: 19980101
  4. NITRODERM [Concomitant]
     Route: 062
     Dates: start: 19980101
  5. ASTUDAL [Concomitant]
     Route: 048
     Dates: start: 19980101
  6. SEGURIL [Concomitant]
     Route: 048
     Dates: start: 20050501, end: 20051127

REACTIONS (1)
  - ENCEPHALOPATHY [None]
